FAERS Safety Report 9921267 (Version 1)
Quarter: 2014Q1

REPORT INFORMATION
  Report Type: Spontaneous
  Country: US (occurrence: None)
  Receive Date: 20140221
  Receipt Date: 20140221
  Transmission Date: 20141002
  Serious: Yes (Other)
  Sender: FDA-Public Use
  Company Number: None

PATIENT
  Age: 30 None
  Sex: Female
  Weight: 66.23 kg

DRUGS (1)
  1. BUPRENORPHENE / NALOX. [Suspect]
     Indication: DRUG DEPENDENCE
     Dosage: 1.5 TAB A DAY
     Route: 060
     Dates: start: 20140205

REACTIONS (5)
  - Abdominal discomfort [None]
  - Nausea [None]
  - Viral infection [None]
  - Product substitution issue [None]
  - Therapeutic response unexpected with drug substitution [None]
